FAERS Safety Report 5700190-4 (Version None)
Quarter: 2008Q2

REPORT INFORMATION
  Report Type: 
  Country: None (occurrence: None)
  Receive Date: 20080409
  Receipt Date: 20080327
  Transmission Date: 20081010
  Serious: Yes (Other)
  Sender: FDA-Public Use
  Company Number: GB-JNJFOC-20071202905

PATIENT
  Sex: Male

DRUGS (6)
  1. REMICADE [Suspect]
     Route: 042
  2. REMICADE [Suspect]
     Route: 042
  3. REMICADE [Suspect]
     Route: 042
  4. REMICADE [Suspect]
     Indication: RHEUMATOID ARTHRITIS
     Route: 042
  5. ANTIHISTAMINE [Concomitant]
     Indication: PREMEDICATION
  6. HYDROCORTISONE [Concomitant]
     Indication: PREMEDICATION

REACTIONS (6)
  - BLOOD PRESSURE DECREASED [None]
  - DIARRHOEA [None]
  - HYPERSENSITIVITY [None]
  - INFUSION RELATED REACTION [None]
  - KNEE ARTHROPLASTY [None]
  - RASH [None]
